FAERS Safety Report 5742137-0 (Version None)
Quarter: 2008Q2

REPORT INFORMATION
  Report Type: 
  Country: None (occurrence: None)
  Receive Date: 20080514
  Receipt Date: 20080514
  Transmission Date: 20081010
  Serious: Yes (Other)
  Sender: FDA-Public Use
  Company Number: None

PATIENT
  Age: 79 Year
  Sex: Female

DRUGS (1)
  1. DIGITEK 0.125MG [Suspect]

REACTIONS (2)
  - CHEST DISCOMFORT [None]
  - FATIGUE [None]
